FAERS Safety Report 8901248 (Version 2)
Quarter: 2013Q2

REPORT INFORMATION
  Report Type: Spontaneous
  Country: US (occurrence: US)
  Receive Date: 20121109
  Receipt Date: 20130530
  Transmission Date: 20140414
  Serious: Yes (Death, Other)
  Sender: FDA-Public Use
  Company Number: US-ASTRAZENECA-2012SE84916

PATIENT
  Age: 22447 Day
  Sex: Male

DRUGS (20)
  1. SEROQUEL [Suspect]
     Route: 048
     Dates: start: 200907, end: 20090819
  2. ALPRAZOLAM [Suspect]
     Route: 048
  3. CHLORAL HYDRATE [Suspect]
     Route: 048
  4. CITALOPRAM [Suspect]
     Route: 048
  5. CLONAZEPAM/KLONOPIN [Suspect]
     Route: 048
  6. CLONAZEPAM/KLONOPIN [Suspect]
     Route: 048
  7. DIAZEPAM [Suspect]
     Route: 048
  8. MIRTAZAPINE [Suspect]
     Route: 048
  9. TEMAZEPAM [Suspect]
     Route: 048
  10. TRAZADONE [Suspect]
     Route: 048
  11. CELEXA [Concomitant]
     Dosage: 10 QDAY
     Dates: start: 20090803
  12. XANAX [Concomitant]
     Dosage: AS NEEDED
     Dates: start: 20090803
  13. REMERON [Concomitant]
     Dates: start: 20090803
  14. ASPIRIN [Concomitant]
     Dates: start: 20090803
  15. LISINOPRIL [Concomitant]
     Dates: start: 20090803
  16. LIPITOR [Concomitant]
     Dates: start: 20090803
  17. BETA CAROTENE [Concomitant]
     Dates: start: 20090803
  18. SUPPLEMENTS GABA [Concomitant]
     Dates: start: 20090803
  19. SELENIUM [Concomitant]
     Dates: start: 20090803
  20. LYSINE [Concomitant]
     Dates: start: 20090803

REACTIONS (2)
  - Fall [Fatal]
  - Suicidal ideation [Unknown]
